FAERS Safety Report 18610585 (Version 1)
Quarter: 2020Q4

REPORT INFORMATION
  Report Type: Spontaneous
  Country: CH (occurrence: CH)
  Receive Date: 20201214
  Receipt Date: 20201214
  Transmission Date: 20210114
  Serious: Yes (Other)
  Sender: FDA-Public Use
  Company Number: CH-PFIZER INC-2020485113

PATIENT
  Age: 83 Year
  Sex: Female

DRUGS (22)
  1. MORPHINE HCL [Concomitant]
     Active Substance: MORPHINE HYDROCHLORIDE
     Dosage: UNK
     Route: 048
     Dates: start: 20201124, end: 20201127
  2. TEMGESIC [Concomitant]
     Active Substance: BUPRENORPHINE HYDROCHLORIDE
     Dosage: UNK
     Dates: start: 20201128
  3. DAFALGAN [Suspect]
     Active Substance: ACETAMINOPHEN
     Dosage: 1000 MG, TOTAL (IN TOTAL)
     Dates: start: 20201130, end: 20201130
  4. COSOPT [Concomitant]
     Active Substance: DORZOLAMIDE HYDROCHLORIDE\TIMOLOL MALEATE
     Dosage: UNK
  5. NEXIUM I.V. [Concomitant]
     Active Substance: ESOMEPRAZOLE SODIUM
     Indication: THROMBOSIS PROPHYLAXIS
     Dosage: UNK
  6. DAFALGAN [Suspect]
     Active Substance: ACETAMINOPHEN
     Dosage: 1000 MG, 3X/DAY
     Dates: start: 20201030, end: 20201119
  7. MORPHINE HCL [Concomitant]
     Active Substance: MORPHINE HYDROCHLORIDE
     Dosage: UNK
     Route: 042
     Dates: start: 20201123, end: 20201124
  8. MORPHINE HCL [Concomitant]
     Active Substance: MORPHINE HYDROCHLORIDE
     Dosage: UNK
     Route: 042
     Dates: start: 20201116
  9. PASPERTIN [METOCLOPRAMIDE;POLIDOCANOL] [Concomitant]
     Dosage: UNK
     Dates: start: 20201030
  10. TAZOBAC [Suspect]
     Active Substance: PIPERACILLIN SODIUM\TAZOBACTAM SODIUM
     Indication: PNEUMONIA
     Dosage: 4.5 G, 3X/DAY (EVERY 8 HOURS)
     Route: 042
     Dates: start: 20201122, end: 20201128
  11. CIRCADIN [Concomitant]
     Active Substance: MELATONIN
     Dosage: UNK
     Dates: start: 20201106
  12. LASIX [Concomitant]
     Active Substance: FUROSEMIDE
     Dosage: 40 MG, 2X/DAY
     Route: 042
     Dates: start: 20201123, end: 20201123
  13. DAFALGAN [Suspect]
     Active Substance: ACETAMINOPHEN
     Dosage: 1000 MG, TOTAL (IN TOTAL)
     Dates: start: 20201125, end: 20201125
  14. TAZOBAC [Suspect]
     Active Substance: PIPERACILLIN SODIUM\TAZOBACTAM SODIUM
     Indication: ANTIBIOTIC THERAPY
  15. DEXAMETHASONE. [Concomitant]
     Active Substance: DEXAMETHASONE
     Dosage: 6 MG
     Route: 048
     Dates: start: 20201123, end: 20201123
  16. LASIX [Concomitant]
     Active Substance: FUROSEMIDE
     Dosage: 20 MG, 3X/DAY
     Route: 042
     Dates: start: 20201124, end: 20201126
  17. SERTRALINE [Concomitant]
     Active Substance: SERTRALINE HYDROCHLORIDE
     Indication: DEPRESSION
     Dosage: UNK
  18. DAFALGAN [Suspect]
     Active Substance: ACETAMINOPHEN
     Dosage: 1000 MG, TOTAL (IN TOTAL)
     Dates: start: 20201128, end: 20201128
  19. CLEXANE [Concomitant]
     Active Substance: ENOXAPARIN SODIUM
     Indication: THROMBOSIS PROPHYLAXIS
     Dosage: UNK
     Dates: start: 20201031
  20. ISOKET [Concomitant]
     Active Substance: ISOSORBIDE DINITRATE
     Dosage: 1.25 MG, 2X/DAY
     Route: 060
     Dates: start: 20201123, end: 20201123
  21. TEMESTA [LORAZEPAM] [Concomitant]
     Active Substance: LORAZEPAM
     Dosage: UNK
     Dates: start: 20201106
  22. TORASEMIDE [Concomitant]
     Active Substance: TORSEMIDE
     Dosage: 5 MG, DAILY
     Route: 048
     Dates: start: 20201127

REACTIONS (1)
  - Mixed liver injury [Recovering/Resolving]

NARRATIVE: CASE EVENT DATE: 20201129
